FAERS Safety Report 12378282 (Version 1)
Quarter: 2016Q2

REPORT INFORMATION
  Report Type: Spontaneous
  Country: US (occurrence: US)
  Receive Date: 20160517
  Receipt Date: 20160517
  Transmission Date: 20160815
  Serious: No
  Sender: FDA-Public Use
  Company Number: US-JNJFOC-20160412450

PATIENT
  Age: 70 Year
  Sex: Female
  Weight: 52.16 kg

DRUGS (1)
  1. TYLENOL REGULAR STRENGTH [Suspect]
     Active Substance: ACETAMINOPHEN
     Indication: PAIN
     Dosage: 1 TABLET, 1X IN THE MIDDLE OF THE NIGHT ONLY WHEN NEEDED
     Route: 048

REACTIONS (1)
  - Incorrect dose administered [Unknown]
